FAERS Safety Report 7135855-3 (Version None)
Quarter: 2010Q4

REPORT INFORMATION
  Report Type: 
  Country: None (occurrence: None)
  Receive Date: 20101203
  Receipt Date: 20101119
  Transmission Date: 20110411
  Serious: Yes (Other)
  Sender: FDA-Public Use
  Company Number: US-AMGEN-USASP2010001877

PATIENT

DRUGS (4)
  1. PROCRIT [Suspect]
     Indication: ANAEMIA OF MALIGNANT DISEASE
     Dosage: 40000 UNIT, QWK
     Dates: start: 20070223, end: 20101013
  2. RITUXAN [Concomitant]
     Dosage: UNK
     Dates: start: 20070326, end: 20100922
  3. BENDAMUSTINE HYDROCHLORIDE [Concomitant]
  4. CYCLOPHOSPHAMIDE W/VINCRISTINE/PREDNISONE [Concomitant]

REACTIONS (8)
  - APLASIA PURE RED CELL [None]
  - BONE MARROW RETICULIN FIBROSIS [None]
  - FATIGUE [None]
  - HAEMOGLOBIN DECREASED [None]
  - INFECTION [None]
  - MYELODYSPLASTIC SYNDROME [None]
  - PANCYTOPENIA [None]
  - SPLENOMEGALY [None]
